FAERS Safety Report 6906047-5 (Version None)
Quarter: 2010Q3

REPORT INFORMATION
  Report Type: 
  Country: None (occurrence: None)
  Receive Date: 20100804
  Receipt Date: 20100730
  Transmission Date: 20110219
  Serious: Yes (Other)
  Sender: FDA-Public Use
  Company Number: GB-EISAI INC.-E2090-01173-SPO-GB

PATIENT
  Sex: Female

DRUGS (1)
  1. ZONEGRAN [Suspect]
     Indication: FRONTAL LOBE EPILEPSY
     Dosage: UNKNOWN
     Route: 048

REACTIONS (2)
  - ABORTION SPONTANEOUS [None]
  - DRUG EXPOSURE DURING PREGNANCY [None]
